FAERS Safety Report 14215470 (Version 2)
Quarter: 2017Q4

REPORT INFORMATION
  Report Type: Spontaneous
  Country: US (occurrence: US)
  Receive Date: 20171122
  Receipt Date: 20171208
  Transmission Date: 20180321
  Serious: No
  Sender: FDA-Public Use
  Company Number: US-GLAXOSMITHKLINE-US2017177928

PATIENT
  Sex: Female
  Weight: 50.79 kg

DRUGS (11)
  1. AMLODIPINE [Concomitant]
     Active Substance: AMLODIPINE BESYLATE
  2. FLUNISOLIDE NASAL SPRAY [Concomitant]
  3. SINGULAIR [Concomitant]
     Active Substance: MONTELUKAST SODIUM
  4. METOPROLOL. [Concomitant]
     Active Substance: METOPROLOL
  5. ADVAIR DISKUS [Suspect]
     Active Substance: FLUTICASONE PROPIONATE\SALMETEROL XINAFOATE
     Indication: MULTIPLE ALLERGIES
     Dosage: 1 PUFF(S), BID
     Route: 055
     Dates: start: 20171106
  6. TRAZODONE [Concomitant]
     Active Substance: TRAZODONE HYDROCHLORIDE
  7. ATORVASTATIN [Concomitant]
     Active Substance: ATORVASTATIN
  8. VALSARTAN. [Concomitant]
     Active Substance: VALSARTAN
  9. METHYLPHENIDATE ER [Concomitant]
     Active Substance: METHYLPHENIDATE
  10. LORATADINE. [Concomitant]
     Active Substance: LORATADINE
  11. VITAMIN D2 [Concomitant]
     Active Substance: ERGOCALCIFEROL

REACTIONS (5)
  - Drug ineffective for unapproved indication [Unknown]
  - Product label confusion [Unknown]
  - Off label use [Unknown]
  - Product use in unapproved indication [Unknown]
  - Wrong technique in device usage process [Unknown]
